FAERS Safety Report 5394073-X (Version None)
Quarter: 2007Q3

REPORT INFORMATION
  Report Type: 
  Country: None (occurrence: None)
  Receive Date: 20070723
  Receipt Date: 20070315
  Transmission Date: 20080115
  Serious: No
  Sender: FDA-Public Use
  Company Number: A0640964A

PATIENT
  Age: 61 Year
  Sex: Male
  Weight: 95.5 kg

DRUGS (1)
  1. AVANDIA [Suspect]
     Dosage: 4MG PER DAY
     Route: 065
     Dates: start: 20070129, end: 20070224

REACTIONS (2)
  - BACK PAIN [None]
  - DRUG INEFFECTIVE [None]
